FAERS Safety Report 7354664-3 (Version None)
Quarter: 2011Q1

REPORT INFORMATION
  Report Type: 
  Country: None (occurrence: None)
  Receive Date: 20110316
  Receipt Date: 20110309
  Transmission Date: 20110831
  Serious: Yes (Other)
  Sender: FDA-Public Use
  Company Number: US-PFIZER INC-2010067224

PATIENT
  Sex: Female
  Weight: 126.98 kg

DRUGS (5)
  1. XANAX [Suspect]
     Indication: ANXIETY
     Dosage: TWO AND A HALF TABLETS OF 0.5MG IN THE MORNING AND AFTERNOON AND TWO TABLETS AT NIGHT
  2. CLONIDINE [Concomitant]
     Indication: HYPERTENSION
     Dosage: 0.1 MG, 3X/DAY
     Route: 048
  3. KLONOPIN [Concomitant]
     Indication: HYPERTENSION
     Dosage: 0.5 MG, UNK
     Route: 048
  4. TYLENOL PM [Suspect]
     Indication: SPINAL DISORDER
     Dosage: UNK
     Route: 048
  5. XANAX [Suspect]
     Indication: PANIC ATTACK

REACTIONS (20)
  - DYSGEUSIA [None]
  - DRY MOUTH [None]
  - LIP DRY [None]
  - FEELING ABNORMAL [None]
  - TACHYPHRENIA [None]
  - VERTIGO [None]
  - INSOMNIA [None]
  - NAUSEA [None]
  - DARK CIRCLES UNDER EYES [None]
  - HEADACHE [None]
  - REACTION TO COLOURING [None]
  - SOMNOLENCE [None]
  - DYSPHEMIA [None]
  - DRUG INEFFECTIVE [None]
  - DRY THROAT [None]
  - ABNORMAL BEHAVIOUR [None]
  - ANXIETY [None]
  - PRODUCT COLOUR ISSUE [None]
  - NERVOUSNESS [None]
  - VOMITING [None]
